FAERS Safety Report 4874483-7 (Version None)
Quarter: 2006Q1

REPORT INFORMATION
  Report Type: 
  Country: None (occurrence: None)
  Receive Date: 20060106
  Receipt Date: 20051118
  Transmission Date: 20060701
  Serious: Yes (Other)
  Sender: FDA-Public Use
  Company Number: FR-ROCHE-425434

PATIENT
  Age: 61 Year
  Sex: Female
  Weight: 73 kg

DRUGS (1)
  1. XENICAL [Suspect]
     Indication: OBESITY
     Route: 065

REACTIONS (1)
  - DIVERTICULITIS [None]
